FAERS Safety Report 5061860-7 (Version None)
Quarter: 2006Q3

REPORT INFORMATION
  Report Type: 
  Country: None (occurrence: None)
  Receive Date: 20060720
  Receipt Date: 20060720
  Transmission Date: 20061208
  Serious: No
  Sender: FDA-Public Use
  Company Number: None

PATIENT
  Age: 79 Year
  Sex: Male
  Weight: 80.7403 kg

DRUGS (3)
  1. WARFARIN SODIUM [Suspect]
     Indication: ATRIAL FIBRILLATION
     Dosage: 2.5 MG 5 DAYS 3.75 MG 2 DAY
     Dates: start: 20060210, end: 20060430
  2. WARFARIN SODIUM [Suspect]
     Indication: CARDIAC VALVE PROSTHESIS USER
     Dosage: 2.5 MG 5 DAYS 3.75 MG 2 DAY
     Dates: start: 20060210, end: 20060430
  3. . [Concomitant]

REACTIONS (1)
  - EPISTAXIS [None]
